FAERS Safety Report 17685104 (Version 4)
Quarter: 2021Q1

REPORT INFORMATION
  Report Type: Spontaneous
  Country: US (occurrence: US)
  Receive Date: 20200420
  Receipt Date: 20210201
  Transmission Date: 20210419
  Serious: Yes (Hospitalization, Other)
  Sender: FDA-Public Use
  Company Number: US-009507513-2004USA003720

PATIENT
  Age: 77 Year
  Sex: Male
  Weight: 79.4 kg

DRUGS (31)
  1. AMANTADINE. [Suspect]
     Active Substance: AMANTADINE HYDROCHLORIDE
     Indication: DYSKINESIA
     Dosage: 274 MILLIGRAM, QD AT BEDTIME
     Route: 048
     Dates: start: 20171127
  2. AMANTADINE. [Suspect]
     Active Substance: AMANTADINE HYDROCHLORIDE
     Dosage: 137 MILLIGRAM, 1XDAY AT BEDTIME
     Route: 048
     Dates: start: 2018
  3. AMANTADINE. [Suspect]
     Active Substance: AMANTADINE HYDROCHLORIDE
     Dosage: 274 MILLIGRAM, 1XDAY AT BEDTIME
     Route: 048
     Dates: end: 2020
  4. RIVASTIGMINE. [Concomitant]
     Active Substance: RIVASTIGMINE
     Dosage: 4.6 MILLIGRAM, Q24H
  5. NOURIANZ [Concomitant]
     Active Substance: ISTRADEFYLLINE
     Dosage: UNK
  6. NEUPRO [Suspect]
     Active Substance: ROTIGOTINE
     Dosage: 4 MILLIGRAM
     Route: 062
     Dates: start: 2018, end: 2019
  7. RASAGILINE. [Concomitant]
     Active Substance: RASAGILINE
     Dosage: UNK
  8. ALPRAZOLAM. [Concomitant]
     Active Substance: ALPRAZOLAM
     Dosage: UNK
  9. PREDNISOLONE. [Concomitant]
     Active Substance: PREDNISOLONE
     Dosage: UNK
  10. NEUPRO [Suspect]
     Active Substance: ROTIGOTINE
     Dosage: 8 MILLIGRAM
     Route: 062
     Dates: end: 2018
  11. AZILECT [Concomitant]
     Active Substance: RASAGILINE MESYLATE
     Dosage: 1 MILLIGRAM
     Dates: end: 2019
  12. BYSTOLIC [Concomitant]
     Active Substance: NEBIVOLOL HYDROCHLORIDE
     Dosage: UNK
  13. CHOLECALCIFEROL [Concomitant]
     Active Substance: CHOLECALCIFEROL
     Dosage: UNK
  14. SILDENAFIL CITRATE. [Concomitant]
     Active Substance: SILDENAFIL CITRATE
     Dosage: UNK
  15. MUPIROCIN. [Concomitant]
     Active Substance: MUPIROCIN
     Dosage: UNK
  16. AMANTADINE. [Suspect]
     Active Substance: AMANTADINE HYDROCHLORIDE
     Dosage: 274 MILLIGRAM, 1XDAY AT BEDTIME
     Route: 048
     Dates: start: 2019
  17. AMANTADINE. [Suspect]
     Active Substance: AMANTADINE HYDROCHLORIDE
     Indication: DYSKINESIA
     Dosage: 68.5 MILLIGRAM, 1XDAY, AT BEDTIME
     Route: 048
     Dates: start: 2018
  18. AMANTADINE. [Suspect]
     Active Substance: AMANTADINE HYDROCHLORIDE
     Dosage: 137 MILLIGRAM, 1X/DAY AT BED TIME
     Route: 048
  19. RAPAFLO [Concomitant]
     Active Substance: SILODOSIN
     Dosage: UNK
  20. VESICARE [Concomitant]
     Active Substance: SOLIFENACIN SUCCINATE
     Dosage: UNK
  21. MOXIFLOXACIN. [Concomitant]
     Active Substance: MOXIFLOXACIN
     Dosage: UNK
  22. CENTRUM (MINERALS (UNSPECIFIED) (+) VITAMINS (UNSPECIFIED)) [Concomitant]
     Active Substance: MINERALS\VITAMINS
     Dosage: UNK
  23. MEMANTINE. [Concomitant]
     Active Substance: MEMANTINE
     Dosage: UNK
  24. AMANTADINE. [Suspect]
     Active Substance: AMANTADINE HYDROCHLORIDE
     Dosage: 137 MILLIGRAM, 1XDAY AT BEDTIME
     Route: 048
     Dates: end: 2019
  25. METFORMIN [Concomitant]
     Active Substance: METFORMIN HYDROCHLORIDE
     Dosage: UNK
  26. ERYTHROMYCIN. [Concomitant]
     Active Substance: ERYTHROMYCIN
     Dosage: UNK
  27. AMANTADINE. [Suspect]
     Active Substance: AMANTADINE HYDROCHLORIDE
     Dosage: 274 MILLIGRAM, 1XDAY AT BEDTIME
     Route: 048
     Dates: start: 20171127, end: 2018
  28. SINEMET [Suspect]
     Active Substance: CARBIDOPA\LEVODOPA
     Dosage: 25/100 MILLIGRAM ABOUT ONCE EVERY 3 HOURS
     Route: 048
  29. AMANTADINE. [Suspect]
     Active Substance: AMANTADINE HYDROCHLORIDE
     Dosage: 274 MILLIGRAM, 1XDAY AT BEDTIME
     Route: 048
     Dates: start: 2020
  30. CLOBETASOL PROPIONATE. [Concomitant]
     Active Substance: CLOBETASOL PROPIONATE
     Dosage: UNK
  31. KETOROLAC TROMETHAMINE. [Concomitant]
     Active Substance: KETOROLAC TROMETHAMINE
     Dosage: UNK

REACTIONS (26)
  - Hallucination, visual [Not Recovered/Not Resolved]
  - Dry skin [Unknown]
  - Constipation [Not Recovered/Not Resolved]
  - Teeth brittle [Not Recovered/Not Resolved]
  - Fluid retention [Unknown]
  - Exfoliative rash [Unknown]
  - Delusion [Unknown]
  - Intentional overdose [Unknown]
  - Freezing phenomenon [Unknown]
  - Tooth fracture [Not Recovered/Not Resolved]
  - Iron deficiency anaemia [Recovered/Resolved]
  - Internal haemorrhage [Unknown]
  - Rash pruritic [Recovered/Resolved]
  - Product dose omission issue [Unknown]
  - Joint swelling [Recovering/Resolving]
  - Muscular weakness [Not Recovered/Not Resolved]
  - Nightmare [Unknown]
  - Gastrooesophageal reflux disease [Unknown]
  - Oedema peripheral [Unknown]
  - Gait inability [Unknown]
  - Pruritus [Not Recovered/Not Resolved]
  - Adverse event [Unknown]
  - Gastrointestinal ulcer [Unknown]
  - Renal function test abnormal [Unknown]
  - Bradykinesia [Unknown]
  - Abdominal pain upper [Recovered/Resolved]

NARRATIVE: CASE EVENT DATE: 201811
